FAERS Safety Report 25067316 (Version 2)
Quarter: 2025Q2

REPORT INFORMATION
  Report Type: Report from Study
  Country: US (occurrence: US)
  Receive Date: 20250312
  Receipt Date: 20250520
  Transmission Date: 20250716
  Serious: No
  Sender: SUNOVION
  Company Number: US-SMPA-2025SPA001929AA

PATIENT

DRUGS (13)
  1. ORGOVYX [Suspect]
     Active Substance: RELUGOLIX
     Indication: Prostate cancer
     Dosage: 360 MG, SINGLE
     Route: 048
  2. ORGOVYX [Suspect]
     Active Substance: RELUGOLIX
     Dosage: 120 MG, QD
     Route: 048
     Dates: start: 20250206
  3. COLLAGEN [Concomitant]
     Active Substance: COLLAGEN
     Route: 065
  4. ALOE VERA LEAF [Concomitant]
     Active Substance: ALOE VERA LEAF
     Route: 065
  5. CALCIUM [Concomitant]
     Active Substance: CALCIUM
     Route: 065
  6. FISH OIL [Concomitant]
     Active Substance: FISH OIL
     Route: 065
  7. MAGNESIUM [Concomitant]
     Active Substance: MAGNESIUM
     Route: 065
  8. VITAMINS [Concomitant]
     Active Substance: VITAMINS
     Route: 065
  9. VITAMIN C [Concomitant]
     Active Substance: ASCORBIC ACID
     Route: 065
  10. VITAMIN D3 [Concomitant]
     Active Substance: CHOLECALCIFEROL
     Route: 065
  11. XTANDI [Concomitant]
     Active Substance: ENZALUTAMIDE
     Route: 065
  12. D3 +K2 [Concomitant]
     Route: 065
  13. KELP [Concomitant]
     Active Substance: KELP
     Route: 065

REACTIONS (4)
  - Erythema [Unknown]
  - Skin exfoliation [Unknown]
  - Fatigue [Not Recovered/Not Resolved]
  - Asthenia [Unknown]
